FAERS Safety Report 6551908-2 (Version None)
Quarter: 2010Q1

REPORT INFORMATION
  Report Type: 
  Country: None (occurrence: None)
  Receive Date: 20100126
  Receipt Date: 20100114
  Transmission Date: 20100710
  Serious: Yes (Hospitalization)
  Sender: FDA-Public Use
  Company Number: US-ELI_LILLY_AND_COMPANY-US200912002434

PATIENT
  Age: 49 Year
  Sex: Female
  Weight: 76.644 kg

DRUGS (5)
  1. CYMBALTA [Suspect]
     Indication: DEPRESSION
     Dosage: 1 D/F, UNK
     Dates: start: 20091203, end: 20091209
  2. REMERON [Concomitant]
  3. VANCOMYCIN [Concomitant]
  4. DILAUDID [Concomitant]
     Dosage: UNK, AS NEEDED
  5. FENTANYL [Concomitant]
     Route: 062

REACTIONS (1)
  - JEJUNAL FISTULA [None]
